FAERS Safety Report 20743787 (Version 2)
Quarter: 2022Q2

REPORT INFORMATION
  Report Type: Spontaneous
  Country: US (occurrence: US)
  Receive Date: 20220425
  Receipt Date: 20220606
  Transmission Date: 20220721
  Serious: No
  Sender: FDA-Public Use
  Company Number: US-GSKCCFUS-Case-01352894_AE-78391

PATIENT
  Sex: Female

DRUGS (1)
  1. BREO ELLIPTA [Suspect]
     Active Substance: FLUTICASONE FUROATE\VILANTEROL TRIFENATATE
     Indication: Gastrooesophageal reflux disease
     Dosage: 1 PUFF(S), QD  200/25
     Route: 055
     Dates: start: 2020

REACTIONS (3)
  - Wheezing [Unknown]
  - Off label use [Unknown]
  - Product complaint [Unknown]
